FAERS Safety Report 13586316 (Version 1)
Quarter: 2017Q2

REPORT INFORMATION
  Report Type: Spontaneous
  Country: SE (occurrence: SE)
  Receive Date: 20170526
  Receipt Date: 20170526
  Transmission Date: 20170830
  Serious: Yes (Hospitalization, Other)
  Sender: FDA-Public Use
  Company Number: SE-PFIZER INC-2017230860

PATIENT
  Age: 37 Year
  Sex: Male

DRUGS (7)
  1. PROPAVAN [Concomitant]
     Active Substance: PROPIOMAZINE
  2. STESOLID [Concomitant]
     Active Substance: DIAZEPAM
  3. MIRTAZAPIN ACTAVIS [Concomitant]
     Active Substance: MIRTAZAPINE
  4. ANTABUS [Concomitant]
     Active Substance: DISULFIRAM
  5. DIKLOFENAK MYLAN [Concomitant]
  6. THERALEN [Concomitant]
     Active Substance: TRIMEPRAZINE
  7. XANOR [Suspect]
     Active Substance: ALPRAZOLAM
     Dosage: 6.25 MG, SINGLE
     Route: 048
     Dates: start: 20150122, end: 20150122

REACTIONS (1)
  - Toxicity to various agents [Recovered/Resolved]

NARRATIVE: CASE EVENT DATE: 20150122
